FAERS Safety Report 19446618 (Version 1)
Quarter: 2021Q2

REPORT INFORMATION
  Report Type: Spontaneous
  Country: US (occurrence: US)
  Receive Date: 20210622
  Receipt Date: 20210622
  Transmission Date: 20210717
  Serious: Yes (Other)
  Sender: FDA-Public Use
  Company Number: US-ASTRAZENECA-2021A539298

PATIENT
  Age: 654 Month
  Sex: Male
  Weight: 68.9 kg

DRUGS (2)
  1. BRILINTA [Suspect]
     Active Substance: TICAGRELOR
     Indication: STENT PLACEMENT
     Route: 048
     Dates: start: 201907, end: 202007
  2. BRILINTA [Suspect]
     Active Substance: TICAGRELOR
     Indication: STENT PLACEMENT
     Route: 048
     Dates: start: 20210518

REACTIONS (4)
  - Stent placement [Unknown]
  - Coronary artery occlusion [Unknown]
  - Electrocardiogram abnormal [Unknown]
  - Complication associated with device [Unknown]

NARRATIVE: CASE EVENT DATE: 202105
